FAERS Safety Report 11398387 (Version 1)
Quarter: 2015Q3

REPORT INFORMATION
  Report Type: Spontaneous
  Country: US (occurrence: None)
  Receive Date: 20150818
  Receipt Date: 20150818
  Transmission Date: 20151125
  Serious: No
  Sender: FDA-Public Use
  Company Number: None

PATIENT
  Age: 58 Year
  Sex: Female
  Weight: 104.33 kg

DRUGS (8)
  1. GABAPENTIN 300 MG. CHAMBER PHARMACY [Suspect]
     Active Substance: GABAPENTIN
     Indication: NEUROPATHY PERIPHERAL
     Dosage: 1 PILL INCREASING TO 3 PILLS
     Route: 048
     Dates: start: 20150626, end: 20150809
  2. POTASSIUM [Concomitant]
     Active Substance: POTASSIUM
  3. DICLOFENIC [Concomitant]
  4. CLONAZEPAM. [Concomitant]
     Active Substance: CLONAZEPAM
  5. OMEGA 3, 6, 9 [Concomitant]
  6. TRAMADOL. [Concomitant]
     Active Substance: TRAMADOL
  7. DYAZIDE [Concomitant]
     Active Substance: HYDROCHLOROTHIAZIDE\TRIAMTERENE
  8. FLONASE [Concomitant]
     Active Substance: FLUTICASONE PROPIONATE

REACTIONS (9)
  - Malaise [None]
  - Sneezing [None]
  - Wheezing [None]
  - Throat irritation [None]
  - Chills [None]
  - Dizziness [None]
  - Balance disorder [None]
  - Nasal congestion [None]
  - Feeling of despair [None]

NARRATIVE: CASE EVENT DATE: 20150808
